FAERS Safety Report 24285084 (Version 6)
Quarter: 2025Q2

REPORT INFORMATION
  Report Type: Spontaneous
  Country: JP (occurrence: JP)
  Receive Date: 20240905
  Receipt Date: 20250403
  Transmission Date: 20250716
  Serious: Yes (Other)
  Sender: JOHNSON AND JOHNSON
  Company Number: JP-JNJFOC-20240902028

PATIENT
  Age: 52 Year
  Sex: Female

DRUGS (3)
  1. UPTRAVI [Suspect]
     Active Substance: SELEXIPAG
     Indication: Pulmonary arterial hypertension
     Route: 048
     Dates: start: 20240814, end: 20240828
  2. UPTRAVI [Suspect]
     Active Substance: SELEXIPAG
     Route: 048
     Dates: start: 20240814, end: 20240828
  3. OPSUMIT [Suspect]
     Active Substance: MACITENTAN
     Indication: Pulmonary arterial hypertension
     Route: 048
     Dates: start: 20240805

REACTIONS (1)
  - Pulmonary congestion [Recovered/Resolved]

NARRATIVE: CASE EVENT DATE: 20240827
